FAERS Safety Report 14759585 (Version 2)
Quarter: 2019Q1

REPORT INFORMATION
  Report Type: Spontaneous
  Country: US (occurrence: US)
  Receive Date: 20180413
  Receipt Date: 20190308
  Transmission Date: 20190417
  Serious: Yes (Other)
  Sender: FDA-Public Use
  Company Number: US-ASTRAZENECA-2018SE44435

PATIENT
  Age: 17924 Day
  Sex: Female
  Weight: 76.2 kg

DRUGS (16)
  1. IODIXANOL. [Concomitant]
     Active Substance: IODIXANOL
  2. NEURONTIN [Concomitant]
     Active Substance: GABAPENTIN
  3. PROTONIX [Concomitant]
     Active Substance: PANTOPRAZOLE SODIUM
  4. CLOPIDOGREL [Concomitant]
     Active Substance: CLOPIDOGREL BISULFATE
  5. KOMBIGLYZE XR [Suspect]
     Active Substance: METFORMIN HYDROCHLORIDE\SAXAGLIPTIN HYDROCHLORIDE
     Indication: DIABETES MELLITUS
     Route: 048
     Dates: start: 2016
  6. ONGLYZA [Suspect]
     Active Substance: SAXAGLIPTIN HYDROCHLORIDE
     Indication: DIABETES MELLITUS
     Route: 048
     Dates: start: 2016
  7. PRINIVIL [Concomitant]
     Active Substance: LISINOPRIL
  8. ASPIRIN. [Concomitant]
     Active Substance: ASPIRIN
  9. ONGLYZA [Suspect]
     Active Substance: SAXAGLIPTIN HYDROCHLORIDE
     Indication: DIABETES MELLITUS
     Route: 048
     Dates: start: 20161011
  10. ZOFRAN [Concomitant]
     Active Substance: ONDANSETRON HYDROCHLORIDE
  11. LOPRESSOR [Concomitant]
     Active Substance: METOPROLOL TARTRATE
  12. AMOXICILLIN. [Concomitant]
     Active Substance: AMOXICILLIN
  13. TUMS [Concomitant]
     Active Substance: CALCIUM CARBONATE
  14. LIPITOR [Concomitant]
     Active Substance: ATORVASTATIN CALCIUM
  15. NAPROXEN. [Concomitant]
     Active Substance: NAPROXEN
  16. METFORMIN [Concomitant]
     Active Substance: METFORMIN HYDROCHLORIDE

REACTIONS (5)
  - Cardiovascular disorder [Unknown]
  - Coronary artery disease [Unknown]
  - Cardiomyopathy [Unknown]
  - Cardiac failure [Unknown]
  - Cardiac failure congestive [Unknown]

NARRATIVE: CASE EVENT DATE: 20170803
